FAERS Safety Report 19436429 (Version 1)
Quarter: 2021Q2

REPORT INFORMATION
  Report Type: Report from Study
  Country: FR (occurrence: FR)
  Receive Date: 20210618
  Receipt Date: 20210618
  Transmission Date: 20210717
  Serious: Yes (Hospitalization)
  Sender: FDA-Public Use
  Company Number: FR-ROCHE-2643657

PATIENT
  Age: 71 Year
  Sex: Male

DRUGS (10)
  1. CISPLATIN. [Suspect]
     Active Substance: CISPLATIN
     Indication: ANAL SQUAMOUS CELL CARCINOMA
     Dosage: DATE OF LAST DOSE PRIOR TO SAE: 27/MAR/2020
     Route: 042
     Dates: start: 20191220
  2. INNOHEP [Concomitant]
     Active Substance: TINZAPARIN SODIUM
  3. DOCETAXEL. [Suspect]
     Active Substance: DOCETAXEL
     Indication: ANAL SQUAMOUS CELL CARCINOMA
     Dosage: DATE OF LAST DOSE PRIOR TO SAE: 27/MAR/2020
     Route: 042
     Dates: start: 20191220
  4. SKENAN [Concomitant]
     Active Substance: MORPHINE SULFATE
  5. KARDEGIC [Concomitant]
     Active Substance: ASPIRIN DL-LYSINE
  6. PANTOPRAZOLE [Concomitant]
     Active Substance: PANTOPRAZOLE
  7. 5?FU [Suspect]
     Active Substance: FLUOROURACIL
     Indication: ANAL SQUAMOUS CELL CARCINOMA
     Dosage: DATE OF LAST DOSE PRIOR TO SAE: 27/MAR/2020
     Route: 042
     Dates: start: 20191220
  8. ATEZOLIZUMAB. [Suspect]
     Active Substance: ATEZOLIZUMAB
     Indication: ANAL SQUAMOUS CELL CARCINOMA
     Dosage: DATE OF LAST DOSE PRIOR TO SAE: 29/JUN/2020
     Route: 041
     Dates: start: 20191220
  9. ACTISKENAN [Concomitant]
     Active Substance: MORPHINE SULFATE
  10. PARACETAMOL [Concomitant]
     Active Substance: ACETAMINOPHEN

REACTIONS (2)
  - Wound infection [Recovered/Resolved with Sequelae]
  - Surgery [Recovered/Resolved]

NARRATIVE: CASE EVENT DATE: 20200629
